FAERS Safety Report 8163282 (Version 5)
Quarter: 2013Q3

REPORT INFORMATION
  Report Type: Report from Study
  Country: AU (occurrence: AU)
  Receive Date: 20110930
  Receipt Date: 20130731
  Transmission Date: 20140515
  Serious: Yes (Other)
  Sender: FDA-Public Use
  Company Number: AU-CELGENEUS-008-C5013-11092326

PATIENT
  Age: 78 Year
  Sex: Male

DRUGS (9)
  1. CC-5013 [Suspect]
     Indication: PLASMA CELL MYELOMA
     Route: 048
     Dates: start: 20081011
  2. CC-5013 [Suspect]
     Route: 048
     Dates: end: 20111229
  3. PLACEBO FOR CC-5013 [Suspect]
     Indication: PLASMA CELL MYELOMA
     Route: 048
  4. MELPHALAN [Suspect]
     Indication: PLASMA CELL MYELOMA
     Route: 065
     Dates: start: 20070623, end: 20080204
  5. PREDNISONE [Suspect]
     Indication: PLASMA CELL MYELOMA
     Route: 065
  6. PAMIDRONATE [Concomitant]
     Indication: PLASMA CELL MYELOMA
     Route: 065
  7. LACTULOSE [Concomitant]
     Indication: CONSTIPATION
     Route: 065
  8. ASPIRINE [Concomitant]
     Indication: THROMBOSIS PROPHYLAXIS
     Route: 065
  9. BETAMETHASONE VALERATE [Concomitant]
     Indication: URTICARIA
     Route: 065

REACTIONS (5)
  - Squamous cell carcinoma of skin [Recovered/Resolved]
  - Squamous cell carcinoma of skin [Recovered/Resolved]
  - Actinic keratosis [Recovered/Resolved]
  - Squamous cell carcinoma of skin [Recovered/Resolved]
  - Bowen^s disease [Recovered/Resolved]
